FAERS Safety Report 15353473 (Version 9)
Quarter: 2018Q4

REPORT INFORMATION
  Report Type: Report from Study
  Country: US (occurrence: US)
  Receive Date: 20180905
  Receipt Date: 20181203
  Transmission Date: 20190204
  Serious: Yes (Hospitalization)
  Sender: FDA-Public Use
  Company Number: US-ACTELION-A-NJ2018-170981

PATIENT
  Age: 43 Year
  Sex: Female
  Weight: 108.84 kg

DRUGS (13)
  1. VELETRI [Suspect]
     Active Substance: EPOPROSTENOL
     Dosage: 28 NG/KG, PER MIN
     Route: 042
  2. VELETRI [Suspect]
     Active Substance: EPOPROSTENOL
     Dosage: 27 NG/KG, PER MIN
     Route: 042
  3. VELETRI [Suspect]
     Active Substance: EPOPROSTENOL
     Indication: PULMONARY ARTERIAL HYPERTENSION
     Dosage: 30 NG/KG, PER MIN
     Route: 042
  4. VELETRI [Suspect]
     Active Substance: EPOPROSTENOL
     Dosage: 18 NG/KG, PER MIN
     Route: 042
  5. VELETRI [Suspect]
     Active Substance: EPOPROSTENOL
     Dosage: 13 NG/KG, PER MIN
     Route: 042
  6. VELETRI [Suspect]
     Active Substance: EPOPROSTENOL
     Dosage: 5 NG/KG, PER MIN
     Route: 042
  7. ADCIRCA [Concomitant]
     Active Substance: TADALAFIL
     Dosage: UNK
  8. VELETRI [Suspect]
     Active Substance: EPOPROSTENOL
     Dosage: 31 NG/KG, PER MIN
     Route: 042
  9. XARELTO [Concomitant]
     Active Substance: RIVAROXABAN
  10. VELETRI [Suspect]
     Active Substance: EPOPROSTENOL
     Dosage: 8 NG/KG, PER MIN
     Route: 042
     Dates: start: 20180420
  11. VELETRI [Suspect]
     Active Substance: EPOPROSTENOL
     Dosage: 25 NG/KG, PER MIN
     Route: 042
  12. VELETRI [Suspect]
     Active Substance: EPOPROSTENOL
     Dosage: UNK
     Route: 042
  13. OPSUMIT [Suspect]
     Active Substance: MACITENTAN
     Indication: PULMONARY ARTERIAL HYPERTENSION
     Dosage: 10 MG, QD
     Route: 048
     Dates: start: 20170209

REACTIONS (61)
  - Staphylococcus test positive [Recovered/Resolved]
  - Rash [Unknown]
  - Back pain [Unknown]
  - Catheter site dermatitis [Unknown]
  - Staphylococcal sepsis [Unknown]
  - Device related sepsis [Unknown]
  - Blood bilirubin increased [Unknown]
  - Thrombosis in device [Unknown]
  - Pain in jaw [Unknown]
  - Vomiting [Unknown]
  - Vascular device infection [Recovered/Resolved]
  - Heart rate increased [Recovered/Resolved]
  - Haematocrit decreased [Unknown]
  - Constipation [Unknown]
  - Diarrhoea [Unknown]
  - Catheter site pain [Unknown]
  - Dizziness [Unknown]
  - Bacterial vaginosis [Unknown]
  - Oxygen saturation decreased [Recovered/Resolved]
  - Neck pain [Unknown]
  - Flushing [Unknown]
  - Catheter site erythema [Unknown]
  - Application site pruritus [Recovering/Resolving]
  - Fatigue [Unknown]
  - Oedema peripheral [Unknown]
  - Cough [Unknown]
  - Anaemia [Unknown]
  - Nodule [Unknown]
  - Platelet count decreased [Unknown]
  - Catheter site swelling [Unknown]
  - Catheter site inflammation [Unknown]
  - Catheter site related reaction [Unknown]
  - Application site discolouration [Unknown]
  - Application site erythema [Recovering/Resolving]
  - Pain [Unknown]
  - Rash pruritic [Unknown]
  - Blister [Recovering/Resolving]
  - Chest pain [Unknown]
  - Pyrexia [Recovered/Resolved]
  - Catheter management [Recovered/Resolved]
  - White blood cell count increased [Unknown]
  - Blood creatinine increased [Unknown]
  - Blood alkaline phosphatase increased [Unknown]
  - Gait disturbance [Unknown]
  - Pain in extremity [Unknown]
  - Nausea [Unknown]
  - Application site hypersensitivity [Unknown]
  - Scab [Unknown]
  - Anxiety [Unknown]
  - Catheter site cellulitis [Unknown]
  - Haemoglobin decreased [Unknown]
  - Catheter site warmth [Unknown]
  - Application site irritation [Recovering/Resolving]
  - Post procedural oedema [Unknown]
  - Malaise [Unknown]
  - Erythema [Unknown]
  - Headache [Unknown]
  - Catheter site rash [Unknown]
  - Catheter site pruritus [Unknown]
  - Application site vesicles [Recovering/Resolving]
  - Device dislocation [Unknown]

NARRATIVE: CASE EVENT DATE: 20180801
